FAERS Safety Report 13872731 (Version 3)
Quarter: 2017Q3

REPORT INFORMATION
  Report Type: Spontaneous
  Country: US (occurrence: US)
  Receive Date: 20170816
  Receipt Date: 20170927
  Transmission Date: 20171127
  Serious: No
  Sender: FDA-Public Use
  Company Number: US-PFIZER INC-2017353137

PATIENT
  Age: 56 Year
  Sex: Female

DRUGS (2)
  1. LYRICA [Suspect]
     Active Substance: PREGABALIN
     Indication: FIBROMYALGIA
  2. LYRICA [Interacting]
     Active Substance: PREGABALIN
     Indication: SMALL FIBRE NEUROPATHY

REACTIONS (2)
  - Drug interaction [Unknown]
  - Drug ineffective [Unknown]
